FAERS Safety Report 9264505 (Version 2)
Quarter: 2013Q2

REPORT INFORMATION
  Report Type: Spontaneous
  Country: US (occurrence: US)
  Receive Date: 20130501
  Receipt Date: 20130604
  Transmission Date: 20140414
  Serious: Yes (Other)
  Sender: FDA-Public Use
  Company Number: US-ROCHE-1219767

PATIENT
  Age: 46 Year
  Sex: Female
  Weight: 98.06 kg

DRUGS (1)
  1. RITUXAN [Suspect]
     Indication: RHEUMATOID ARTHRITIS
     Route: 042
     Dates: start: 20060115, end: 20130424

REACTIONS (1)
  - Dyspnoea [Unknown]
